FAERS Safety Report 22218856 (Version 3)
Quarter: 2024Q1

REPORT INFORMATION
  Report Type: Spontaneous
  Country: US (occurrence: US)
  Receive Date: 20230417
  Receipt Date: 20240102
  Transmission Date: 20240410
  Serious: Yes (Other)
  Sender: FDA-Public Use
  Company Number: US-PFIZER INC-PV202300068308

PATIENT
  Age: 67 Year
  Sex: Female
  Weight: 81.65 kg

DRUGS (5)
  1. MENEST [Suspect]
     Active Substance: ESTROGENS, ESTERIFIED
     Indication: Hormone level abnormal
     Dosage: UNK
     Dates: start: 2000
  2. MENEST [Suspect]
     Active Substance: ESTROGENS, ESTERIFIED
     Dosage: 1.25MG TABLET EVERY OTHER DAY BY MOUTH
     Route: 048
     Dates: start: 2020
  3. FISH OIL [Concomitant]
     Active Substance: FISH OIL
     Dosage: UNK
  4. HYDROCHLOROTHIAZIDE [Concomitant]
     Active Substance: HYDROCHLOROTHIAZIDE
     Indication: Blood pressure abnormal
     Dosage: TWO 12.5MG CAPSULES EVERY MORNING
  5. LOSARTAN [Concomitant]
     Active Substance: LOSARTAN
     Indication: Blood pressure abnormal
     Dosage: 40MG TABLET EVERY MORNING

REACTIONS (3)
  - Multiple sclerosis [Unknown]
  - Blood cholesterol increased [Unknown]
  - Intentional product misuse [Not Recovered/Not Resolved]

NARRATIVE: CASE EVENT DATE: 20200101
